FAERS Safety Report 22254369 (Version 1)
Quarter: 2023Q2

REPORT INFORMATION
  Report Type: Spontaneous
  Country: US (occurrence: US)
  Receive Date: 20230426
  Receipt Date: 20230426
  Transmission Date: 20230722
  Serious: Yes (Other)
  Sender: FDA-Public Use
  Company Number: US-drreddys-SPO/USA/23/0163944

PATIENT
  Age: 27 Year
  Sex: Female

DRUGS (1)
  1. ACCUTANE [Suspect]
     Active Substance: ISOTRETINOIN
     Indication: Acne

REACTIONS (3)
  - Food poisoning [Unknown]
  - Bedridden [Unknown]
  - Illness [Unknown]

NARRATIVE: CASE EVENT DATE: 20230406
